FAERS Safety Report 6770399-X (Version None)
Quarter: 2010Q2

REPORT INFORMATION
  Report Type: 
  Country: None (occurrence: None)
  Receive Date: 20100615
  Receipt Date: 20100604
  Transmission Date: 20101027
  Serious: Yes (Congenital Anomaly)
  Sender: FDA-Public Use
  Company Number: GB-PFIZER INC-2010070284

PATIENT
  Sex: Female

DRUGS (5)
  1. HYDROCORTISONE SODIUM SUCCINATE [Suspect]
     Indication: DERMATITIS ATOPIC
     Dosage: UNK
     Route: 064
  2. FUCIBET [Suspect]
     Indication: DERMATITIS ATOPIC
     Dosage: UNK
     Route: 064
  3. CHLORPHENAMINE [Concomitant]
     Indication: DERMATITIS ATOPIC
     Dosage: 4 MG, UNK
     Route: 064
  4. DIPROBASE OINTMENT [Concomitant]
     Indication: DERMATITIS ATOPIC
     Dosage: UNK
     Route: 064
  5. OILATUM 1 [Concomitant]
     Indication: DERMATITIS ATOPIC
     Dosage: UNK
     Route: 064

REACTIONS (2)
  - CLEFT LIP [None]
  - DRUG EXPOSURE DURING PREGNANCY [None]
